FAERS Safety Report 16302432 (Version 1)
Quarter: 2019Q2

REPORT INFORMATION
  Report Type: Spontaneous
  Country: US (occurrence: US)
  Receive Date: 20190513
  Receipt Date: 20190513
  Transmission Date: 20190711
  Serious: No
  Sender: FDA-Public Use
  Company Number: US-ROCHE-506640

PATIENT
  Age: 27 Year
  Sex: Female
  Weight: 64 kg

DRUGS (7)
  1. COMBIVIR [Suspect]
     Active Substance: LAMIVUDINE\ZIDOVUDINE
     Indication: PRODUCT USED FOR UNKNOWN INDICATION
     Route: 065
     Dates: start: 20050218
  2. ZALCITABINE [Suspect]
     Active Substance: ZALCITABINE
     Indication: ANTIVIRAL TREATMENT
     Route: 048
     Dates: start: 20050218
  3. VIREAD [Suspect]
     Active Substance: TENOFOVIR DISOPROXIL FUMARATE
     Indication: ANTIVIRAL TREATMENT
     Route: 048
     Dates: start: 20040729
  4. FUZEON [Suspect]
     Active Substance: ENFUVIRTIDE
     Indication: ANTIVIRAL TREATMENT
     Route: 048
     Dates: start: 20050322, end: 20050331
  5. EPIVIR [Suspect]
     Active Substance: LAMIVUDINE
     Indication: ANTIVIRAL TREATMENT
     Route: 048
     Dates: start: 20040729, end: 20050218
  6. NORVIR [Suspect]
     Active Substance: RITONAVIR
     Indication: ANTIVIRAL TREATMENT
     Route: 048
     Dates: start: 20040729, end: 20050218
  7. INVIRASE [Suspect]
     Active Substance: SAQUINAVIR MESYLATE
     Indication: ANTIVIRAL TREATMENT
     Route: 048
     Dates: end: 20050218

REACTIONS (4)
  - Vulvovaginal warts [Unknown]
  - Genital infection bacterial [Unknown]
  - Cholestasis of pregnancy [Unknown]
  - Maternal exposure during pregnancy [Unknown]
